FAERS Safety Report 13414380 (Version 5)
Quarter: 2017Q2

REPORT INFORMATION
  Report Type: Spontaneous
  Country: DE (occurrence: DE)
  Receive Date: 20170407
  Receipt Date: 20170608
  Transmission Date: 20170830
  Serious: Yes (Hospitalization, Other)
  Sender: FDA-Public Use
  Company Number: DE-009507513-1704DEU002431

PATIENT
  Age: 56 Year
  Sex: Male
  Weight: 106 kg

DRUGS (1)
  1. AERIUS [Suspect]
     Active Substance: DESLORATADINE
     Indication: SEASONAL ALLERGY
     Dosage: 5 MG (1 TABLET), DAILY
     Route: 048
     Dates: start: 20170318, end: 20170319

REACTIONS (4)
  - Anaphylactic shock [Recovered/Resolved]
  - Product taste abnormal [Unknown]
  - Malaise [Unknown]
  - Product label issue [Unknown]

NARRATIVE: CASE EVENT DATE: 201703
